FAERS Safety Report 17817948 (Version 1)
Quarter: 2020Q2

REPORT INFORMATION
  Report Type: Spontaneous
  Country: RU (occurrence: RU)
  Receive Date: 20200522
  Receipt Date: 20200522
  Transmission Date: 20200714
  Serious: Yes (Other)
  Sender: FDA-Public Use
  Company Number: RU-ASTRAZENECA-2020SE66213

PATIENT
  Age: 42 Year
  Sex: Male

DRUGS (13)
  1. CALCIUM GLUCONATE. [Concomitant]
     Active Substance: CALCIUM GLUCONATE
     Route: 042
  2. FLUIMUCIL [Concomitant]
     Active Substance: ACETYLCYSTEINE
     Route: 065
  3. PULMICORT TURBUHALER [Suspect]
     Active Substance: BUDESONIDE
     Indication: RESPIRATORY TRACT INFECTION VIRAL
     Route: 055
     Dates: start: 20200115
  4. AMBROXOL [Concomitant]
     Active Substance: AMBROXOL
     Indication: RESPIRATORY TRACT INFECTION VIRAL
  5. JOSAMYCIN [Concomitant]
     Active Substance: JOSAMYCIN
     Route: 065
  6. PULMICORT TURBUHALER [Suspect]
     Active Substance: BUDESONIDE
     Indication: TRACHEITIS
     Route: 055
     Dates: start: 20200115
  7. LYSOBACT [Concomitant]
     Route: 042
  8. IPRATROPIUM BROMIDE. [Concomitant]
     Active Substance: IPRATROPIUM BROMIDE
     Route: 065
  9. NIMESULIDE [Concomitant]
     Active Substance: NIMESULIDE
     Route: 065
  10. INGAVIRIN [Concomitant]
     Active Substance: INGAVIRIN
     Indication: RESPIRATORY TRACT INFECTION VIRAL
  11. AMOXICILLIN. [Concomitant]
     Active Substance: AMOXICILLIN
     Route: 048
  12. FENOTEROL [Concomitant]
     Active Substance: FENOTEROL
     Route: 065
  13. TOLPERISONE [Concomitant]
     Active Substance: TOLPERISONE
     Route: 065

REACTIONS (3)
  - Pneumonia mycoplasmal [Unknown]
  - Drug ineffective [Unknown]
  - Off label use [Unknown]
